FAERS Safety Report 5557150-6 (Version None)
Quarter: 2007Q4

REPORT INFORMATION
  Report Type: 
  Country: None (occurrence: None)
  Receive Date: 20071214
  Receipt Date: 20071203
  Transmission Date: 20080405
  Serious: Yes (Other)
  Sender: FDA-Public Use
  Company Number: US-JNJFOC-20071101758

PATIENT
  Sex: Female
  Weight: 15.5 kg

DRUGS (2)
  1. LEVAQUIN [Suspect]
     Indication: TUBERCULOSIS
     Route: 048
  2. ETHIONAMIDE [Concomitant]
     Indication: TUBERCULOSIS
     Route: 065

REACTIONS (2)
  - ENAMEL ANOMALY [None]
  - OFF LABEL USE [None]
